FAERS Safety Report 9517440 (Version 1)
Quarter: 2013Q3

REPORT INFORMATION
  Report Type: Spontaneous
  Country: ES (occurrence: ES)
  Receive Date: 20130911
  Receipt Date: 20130911
  Transmission Date: 20140515
  Serious: Yes (Other)
  Sender: FDA-Public Use
  Company Number: ES-FRI-1000048646

PATIENT
  Age: 72 Year
  Sex: Male

DRUGS (1)
  1. ACLIDINIUM [Suspect]
     Indication: RESPIRATORY FAILURE
     Dosage: 2 DF
     Route: 055
     Dates: start: 20130612, end: 20130614

REACTIONS (2)
  - Off label use [Unknown]
  - Urinary retention [Unknown]
